FAERS Safety Report 10475709 (Version 1)
Quarter: 2014Q3

REPORT INFORMATION
  Report Type: Spontaneous
  Country: US (occurrence: US)
  Receive Date: 20140925
  Receipt Date: 20140925
  Transmission Date: 20150326
  Serious: Yes (Other)
  Sender: FDA-Public Use
  Company Number: US-PFIZER INC-2014265904

PATIENT
  Age: 34 Year
  Sex: Female
  Weight: 63.5 kg

DRUGS (2)
  1. CHANTIX [Suspect]
     Active Substance: VARENICLINE TARTRATE
     Indication: SMOKING CESSATION THERAPY
     Dosage: UNK
     Dates: start: 2014, end: 20140923
  2. OMEGA 3 [Concomitant]
     Active Substance: OMEGA-3 FATTY ACIDS
     Dosage: UNK, 1X/DAY
     Route: 048

REACTIONS (9)
  - Anxiety [Unknown]
  - Affective disorder [Unknown]
  - Stress [Unknown]
  - Anger [Unknown]
  - Emotional disorder [Unknown]
  - Depression [Unknown]
  - Feeling cold [Unknown]
  - Mania [Unknown]
  - Social avoidant behaviour [Unknown]

NARRATIVE: CASE EVENT DATE: 2014
